FAERS Safety Report 10007531 (Version 2)
Quarter: 2014Q2

REPORT INFORMATION
  Report Type: Report from Study
  Country: JP (occurrence: JP)
  Receive Date: 20140313
  Receipt Date: 20140416
  Transmission Date: 20141212
  Serious: Yes (Hospitalization)
  Sender: FDA-Public Use
  Company Number: JP-EISAI INC-E2020-13643-SOL-JP

PATIENT
  Age: 80 Year
  Sex: Female

DRUGS (7)
  1. ARICEPT [Suspect]
     Indication: DEMENTIA ALZHEIMER^S TYPE
     Route: 048
     Dates: start: 20131105, end: 20131118
  2. ARICEPT [Suspect]
     Route: 048
     Dates: start: 20131119, end: 20131203
  3. YOKUKANSAN [Concomitant]
     Indication: DEMENTIA ALZHEIMER^S TYPE
  4. AMOBAN [Concomitant]
  5. AMLODIPINE OD [Concomitant]
  6. SLOW-K [Concomitant]
  7. MAGNESIUM OXIDE [Concomitant]

REACTIONS (3)
  - Haemoptysis [Recovered/Resolved]
  - Pneumonia aspiration [Recovered/Resolved]
  - Anaemia [Recovering/Resolving]
